FAERS Safety Report 26129369 (Version 1)
Quarter: 2025Q4

REPORT INFORMATION
  Report Type: Spontaneous
  Country: CN (occurrence: CN)
  Receive Date: 20251208
  Receipt Date: 20251208
  Transmission Date: 20260117
  Serious: Yes (Hospitalization)
  Sender: ACCORD
  Company Number: CN-Accord-516544

PATIENT
  Age: 34 Year
  Sex: Male
  Weight: 57 kg

DRUGS (2)
  1. TACROLIMUS [Suspect]
     Active Substance: TACROLIMUS
     Indication: Immunosuppressant drug therapy
     Dates: start: 2023
  2. MIZORIBINE [Suspect]
     Active Substance: MIZORIBINE
     Indication: Immunosuppressant drug therapy
     Dates: start: 2023

REACTIONS (6)
  - Meningitis tuberculous [Recovered/Resolved]
  - Renal tuberculosis [Recovered/Resolved]
  - Hydrocephalus [Recovered/Resolved]
  - Brain abscess [Recovered/Resolved]
  - Encephalitis bacterial [Recovered/Resolved]
  - Renal graft infection [Recovered/Resolved]

NARRATIVE: CASE EVENT DATE: 20240101
